FAERS Safety Report 7259248-3 (Version None)
Quarter: 2011Q1

REPORT INFORMATION
  Report Type: 
  Country: None (occurrence: None)
  Receive Date: 20110129
  Receipt Date: 20100814
  Transmission Date: 20110831
  Serious: No
  Sender: FDA-Public Use
  Company Number: US-ABBOTT-10P-163-0664258-00

PATIENT
  Age: 73 Year
  Sex: Female

DRUGS (7)
  1. PLAQUENIL [Concomitant]
     Indication: RHEUMATOID ARTHRITIS
  2. HUMIRA [Suspect]
     Indication: RHEUMATOID ARTHRITIS
     Dates: start: 20071001
  3. METHOTREXATE [Concomitant]
     Indication: RHEUMATOID ARTHRITIS
  4. DILTIAZEM [Concomitant]
     Indication: BLOOD PRESSURE
  5. MULTI-VITAMIN [Concomitant]
     Indication: PRODUCT USED FOR UNKNOWN INDICATION
  6. PREDNISONE [Concomitant]
     Indication: RHEUMATOID ARTHRITIS
     Dosage: 3 TABLETS TODAY, DECREASING DOSAGE
  7. TYLENOL W/ CODEINE [Concomitant]
     Indication: PAIN

REACTIONS (1)
  - VERTIGO [None]
